FAERS Safety Report 9073821 (Version 2)
Quarter: 2013Q1

REPORT INFORMATION
  Report Type: Spontaneous
  Country: CA (occurrence: CA)
  Receive Date: 20130129
  Receipt Date: 20130215
  Transmission Date: 20140127
  Serious: Yes (Other)
  Sender: FDA-Public Use
  Company Number: CA-ELI_LILLY_AND_COMPANY-CA201301008628

PATIENT
  Sex: Female

DRUGS (3)
  1. EFFIENT [Suspect]
     Indication: ANGIOPLASTY
     Dosage: UNK
     Dates: start: 201202
  2. BIVALIRUDIN [Concomitant]
  3. INTEGRELIN [Concomitant]

REACTIONS (4)
  - Arterial restenosis [Unknown]
  - Puncture site haemorrhage [Recovered/Resolved]
  - Feeling abnormal [Unknown]
  - Off label use [Unknown]
